FAERS Safety Report 7648754-5 (Version None)
Quarter: 2011Q3

REPORT INFORMATION
  Report Type: 
  Country: None (occurrence: None)
  Receive Date: 20110801
  Receipt Date: 20110726
  Transmission Date: 20111222
  Serious: Yes (Life-Threatening, Hospitalization)
  Sender: FDA-Public Use
  Company Number: PHHY2009BE29003

PATIENT
  Sex: Male

DRUGS (5)
  1. CLOZAPINE [Suspect]
     Dosage: 25 MG,
     Route: 048
  2. CLOZAPINE [Suspect]
     Indication: SCHIZOPHRENIA
     Dosage: 250 MG,
     Route: 048
  3. ASPEGIC 325 [Concomitant]
     Indication: PYREXIA
     Dosage: UNK UKN, UNK
  4. CLOZAPINE [Suspect]
     Indication: PSYCHOTIC DISORDER
     Dosage: 250 MG, UNK
     Route: 048
     Dates: start: 20090626, end: 20090710
  5. CLOPIXOL [Concomitant]
     Indication: PSYCHOTIC DISORDER
     Dosage: UNK UKN, UNK

REACTIONS (20)
  - ELECTROCARDIOGRAM ABNORMAL [None]
  - C-REACTIVE PROTEIN INCREASED [None]
  - PYREXIA [None]
  - HYPOTENSION [None]
  - HYPOKINESIA [None]
  - MYOCARDITIS [None]
  - TACHYCARDIA [None]
  - HEADACHE [None]
  - CHEST PAIN [None]
  - CARDIOGENIC SHOCK [None]
  - INFLAMMATION [None]
  - DILATATION VENTRICULAR [None]
  - VENTRICULAR DYSFUNCTION [None]
  - DYSPNOEA [None]
  - BLOOD PRESSURE DIASTOLIC INCREASED [None]
  - HYPERHIDROSIS [None]
  - EJECTION FRACTION DECREASED [None]
  - MALAISE [None]
  - CARDIOMYOPATHY [None]
  - FATIGUE [None]
